FAERS Safety Report 8482475-4 (Version None)
Quarter: 2012Q3

REPORT INFORMATION
  Report Type: 
  Country: None (occurrence: None)
  Receive Date: 20120702
  Receipt Date: 20120621
  Transmission Date: 20120928
  Serious: Yes (Other)
  Sender: FDA-Public Use
  Company Number: JP-JNJFOC-20120611618

PATIENT
  Sex: Male
  Weight: 82 kg

DRUGS (6)
  1. METHOTREXATE [Suspect]
     Indication: RHEUMATOID ARTHRITIS
     Route: 065
  2. SIMPONI [Suspect]
     Indication: RHEUMATOID ARTHRITIS
     Route: 058
     Dates: start: 20120517
  3. ALANTA SF [Concomitant]
     Indication: PROPHYLAXIS
     Route: 048
  4. VITAMIN B12 [Concomitant]
     Indication: RHEUMATOID ARTHRITIS
     Route: 065
  5. KENTAN [Concomitant]
     Indication: RHEUMATOID ARTHRITIS
     Route: 048
  6. SELTOUCH [Concomitant]
     Indication: RHEUMATOID ARTHRITIS
     Route: 062

REACTIONS (1)
  - HEPATIC FUNCTION ABNORMAL [None]
